FAERS Safety Report 14551206 (Version 2)
Quarter: 2018Q1

REPORT INFORMATION
  Report Type: Report from Study
  Country: US (occurrence: US)
  Receive Date: 20180220
  Receipt Date: 20180307
  Transmission Date: 20180509
  Serious: Yes (Other)
  Sender: FDA-Public Use
  Company Number: US-ROCHE-2060988

PATIENT
  Age: 55 Year
  Sex: Female

DRUGS (2)
  1. OCREVUS [Suspect]
     Active Substance: OCRELIZUMAB
     Dosage: ONGOING
     Route: 065
     Dates: start: 20171220
  2. OCREVUS [Suspect]
     Active Substance: OCRELIZUMAB
     Indication: PRIMARY PROGRESSIVE MULTIPLE SCLEROSIS
     Route: 065
     Dates: start: 20171206

REACTIONS (10)
  - Rash [Unknown]
  - Alopecia [Unknown]
  - Pruritus [Not Recovered/Not Resolved]
  - Flushing [Unknown]
  - Rash erythematous [Unknown]
  - Pain [Unknown]
  - Pyrexia [Not Recovered/Not Resolved]
  - Infusion related reaction [Recovered/Resolved]
  - Nasopharyngitis [Unknown]
  - Urticaria [Not Recovered/Not Resolved]

NARRATIVE: CASE EVENT DATE: 20180210
